FAERS Safety Report 8770525 (Version 1)
Quarter: 2012Q4

REPORT INFORMATION
  Report Type: 
  Country: US (occurrence: US)
  Receive Date: 20120906
  Receipt Date: 20120906
  Transmission Date: 20130627
  Serious: Yes (Hospitalization)
  Sender: FDA-Public Use
  Company Number: US-SANOFI-AVENTIS-2012SA061887

PATIENT
  Age: 77 Year
  Sex: Female

DRUGS (2)
  1. PLAVIX [Suspect]
     Indication: ATRIAL FIBRILLATION
     Route: 048
     Dates: end: 2012
  2. ATORVASTATIN CALCIUM [Suspect]
     Indication: HIGH CHOLESTEROL
     Route: 048
     Dates: end: 2012

REACTIONS (5)
  - Diabetes mellitus [Unknown]
  - Hyperglycaemia [Unknown]
  - Somnolence [Unknown]
  - Weight decreased [Unknown]
  - Off label use [Unknown]
